FAERS Safety Report 9786891 (Version 1)
Quarter: 2013Q4

REPORT INFORMATION
  Report Type: Report from Study
  Country: US (occurrence: US)
  Receive Date: 20131227
  Receipt Date: 20131227
  Transmission Date: 20140711
  Serious: Yes (Other)
  Sender: FDA-Public Use
  Company Number: US-ABBVIE-13P-163-1180516-00

PATIENT
  Sex: Female

DRUGS (7)
  1. HUMIRA [Suspect]
     Indication: ANKYLOSING SPONDYLITIS
     Dates: start: 2008, end: 2013
  2. HUMIRA [Suspect]
     Indication: CROHN^S DISEASE
  3. LABETALOL [Concomitant]
     Indication: PALPITATIONS
  4. CLONIDINE [Concomitant]
     Indication: BLOOD PRESSURE
  5. PREVACID [Concomitant]
     Indication: GASTROOESOPHAGEAL REFLUX DISEASE
  6. DIAZAPAM [Concomitant]
     Indication: MYALGIA
  7. LORTAB [Concomitant]
     Indication: PAIN

REACTIONS (9)
  - Nasal neoplasm benign [Recovered/Resolved]
  - Lupus-like syndrome [Not Recovered/Not Resolved]
  - Musculoskeletal stiffness [Not Recovered/Not Resolved]
  - Eye pain [Not Recovered/Not Resolved]
  - Chest discomfort [Recovered/Resolved]
  - Abdominal pain upper [Recovered/Resolved]
  - Irritable bowel syndrome [Recovered/Resolved]
  - Headache [Recovered/Resolved]
  - Sinus disorder [Recovered/Resolved]
